FAERS Safety Report 5321423-2 (Version None)
Quarter: 2007Q2

REPORT INFORMATION
  Report Type: 
  Country: None (occurrence: None)
  Receive Date: 20070510
  Receipt Date: 20070504
  Transmission Date: 20071010
  Serious: Yes (Hospitalization, Disabling, Other)
  Sender: FDA-Public Use
  Company Number: HQWYE987104MAY07

PATIENT
  Age: 60 Year
  Sex: Male
  Weight: 90.8 kg

DRUGS (8)
  1. CORDARONE [Suspect]
     Indication: VENTRICULAR EXTRASYSTOLES
     Route: 048
     Dates: start: 19930101
  2. AMIODARONE HYDROCHLORIDE [Suspect]
     Indication: VENTRICULAR EXTRASYSTOLES
     Route: 048
     Dates: end: 20060401
  3. AMIODARONE HYDROCHLORIDE [Suspect]
     Route: 048
     Dates: start: 20060401, end: 20060701
  4. POTASSIUM ACETATE [Concomitant]
     Dosage: UNSPECIFIED
  5. ENALAPRIL MALEATE/HYDROCHLOROTHIAZIDE [Concomitant]
     Dosage: UNSPECIFIED
  6. ACETYLSALICYLIC ACID SRT [Concomitant]
     Dosage: UNSPECIFIED
  7. PACERONE [Suspect]
     Indication: VENTRICULAR EXTRASYSTOLES
     Route: 048
     Dates: start: 20060701, end: 20070201
  8. LIPITOR [Concomitant]
     Dosage: UNSPECIFIED

REACTIONS (4)
  - HEART RATE DECREASED [None]
  - INFLUENZA LIKE ILLNESS [None]
  - LIBIDO DECREASED [None]
  - PULMONARY FIBROSIS [None]
